FAERS Safety Report 4998788-4 (Version None)
Quarter: 2006Q2

REPORT INFORMATION
  Report Type: 
  Country: None (occurrence: None)
  Receive Date: 20060510
  Receipt Date: 20050401
  Transmission Date: 20061013
  Serious: Yes (Hospitalization)
  Sender: FDA-Public Use
  Company Number: US-MERCK-0504USA00482

PATIENT
  Age: 69 Year
  Sex: Male
  Weight: 109 kg

DRUGS (6)
  1. VIOXX [Suspect]
     Indication: ARTHRITIS
     Route: 048
     Dates: start: 20011130, end: 20020619
  2. GLUCOPHAGE [Concomitant]
     Route: 048
  3. ACTOS [Concomitant]
     Route: 048
  4. AMARYL [Concomitant]
     Route: 048
  5. ALLOPURINOL [Concomitant]
     Route: 048
  6. LOTREL [Concomitant]
     Route: 048

REACTIONS (11)
  - ATRIOVENTRICULAR BLOCK FIRST DEGREE [None]
  - CEREBROVASCULAR ACCIDENT [None]
  - FLANK PAIN [None]
  - GASTRITIS [None]
  - HEMIPARESIS [None]
  - OESOPHAGEAL STENOSIS [None]
  - OESOPHAGITIS [None]
  - PARAESTHESIA [None]
  - PHLEBOLITH [None]
  - SKELETAL INJURY [None]
  - VENTRICULAR HYPERTROPHY [None]
